FAERS Safety Report 15905817 (Version 1)
Quarter: 2019Q1

REPORT INFORMATION
  Report Type: Spontaneous
  Country: US (occurrence: US)
  Receive Date: 20190204
  Receipt Date: 20190204
  Transmission Date: 20190417
  Serious: No
  Sender: FDA-Public Use
  Company Number: US-ENDO PHARMACEUTICALS INC-2018-039995

PATIENT
  Sex: Female

DRUGS (1)
  1. METHYLPREDNISOLONE. [Suspect]
     Active Substance: METHYLPREDNISOLONE
     Indication: PRODUCT USED FOR UNKNOWN INDICATION
     Dosage: 4 MG, UNKNOWN
     Route: 048
     Dates: start: 20180626

REACTIONS (2)
  - Rhinorrhoea [Not Recovered/Not Resolved]
  - Erythema [Not Recovered/Not Resolved]

NARRATIVE: CASE EVENT DATE: 20180626
